FAERS Safety Report 21804138 (Version 2)
Quarter: 2023Q1

REPORT INFORMATION
  Report Type: Spontaneous
  Country: PL (occurrence: None)
  Receive Date: 20230102
  Receipt Date: 20230104
  Transmission Date: 20230418
  Serious: Yes (Other)
  Sender: FDA-Public Use
  Company Number: PL-ROCHE-3254917

PATIENT
  Age: 70 Year
  Sex: Male

DRUGS (1)
  1. TECENTRIQ [Suspect]
     Active Substance: ATEZOLIZUMAB
     Indication: Non-small cell lung cancer
     Route: 041
     Dates: start: 202211

REACTIONS (4)
  - Loss of consciousness [Unknown]
  - Blood pressure increased [Unknown]
  - Heart rate increased [Unknown]
  - Altered state of consciousness [Unknown]
